FAERS Safety Report 6447597-8 (Version None)
Quarter: 2009Q4

REPORT INFORMATION
  Report Type: 
  Country: None (occurrence: None)
  Receive Date: 20091119
  Receipt Date: 20090330
  Transmission Date: 20100525
  Serious: Yes (Hospitalization, Other)
  Sender: FDA-Public Use
  Company Number: US-AMGEN-KDL338026

PATIENT
  Sex: Female
  Weight: 89 kg

DRUGS (8)
  1. ENBREL [Suspect]
     Indication: RHEUMATOID ARTHRITIS
     Route: 058
     Dates: start: 19990101
  2. DARVOCET-N 100 [Concomitant]
  3. ACETAMINOPHEN AND HYDROCODONE BITARTRATE [Concomitant]
     Route: 048
  4. CALCIUM [Concomitant]
  5. FLAX SEED OIL [Concomitant]
  6. FISH OIL [Concomitant]
     Route: 048
  7. MAGNESIUM [Concomitant]
  8. MOBIC [Concomitant]
     Route: 048
     Dates: start: 20081118, end: 20090310

REACTIONS (25)
  - ABDOMINAL PAIN UPPER [None]
  - ANXIETY [None]
  - ASTHENIA [None]
  - CERVICAL SPINAL STENOSIS [None]
  - CERVIX CARCINOMA [None]
  - DEPRESSION [None]
  - DRY EYE [None]
  - DYSPEPSIA [None]
  - EYE PRURITUS [None]
  - FATIGUE [None]
  - INSOMNIA [None]
  - INTERVERTEBRAL DISC DEGENERATION [None]
  - LEUKOPENIA [None]
  - LUMBAR SPINAL STENOSIS [None]
  - MUSCULOSKELETAL CHEST PAIN [None]
  - MUSCULOSKELETAL PAIN [None]
  - NAUSEA [None]
  - NOCTURIA [None]
  - OEDEMA PERIPHERAL [None]
  - OSTEOARTHRITIS [None]
  - RHEUMATOID ARTHRITIS [None]
  - SINUS CONGESTION [None]
  - THIRST [None]
  - THYROID NEOPLASM [None]
  - WEIGHT INCREASED [None]
